FAERS Safety Report 14432348 (Version 2)
Quarter: 2018Q1

REPORT INFORMATION
  Report Type: Report from Study
  Country: CA (occurrence: CA)
  Receive Date: 20180124
  Receipt Date: 20180129
  Transmission Date: 20180509
  Serious: No
  Sender: FDA-Public Use
  Company Number: CA-JNJFOC-20180126180

PATIENT
  Sex: Female

DRUGS (1)
  1. REMICADE [Suspect]
     Active Substance: INFLIXIMAB
     Indication: INFLAMMATORY BOWEL DISEASE
     Route: 042
     Dates: start: 20150410

REACTIONS (2)
  - Suicide attempt [Unknown]
  - Depression suicidal [Unknown]

NARRATIVE: CASE EVENT DATE: 20170202
